FAERS Safety Report 9352759 (Version 1)
Quarter: 2013Q2

REPORT INFORMATION
  Report Type: Spontaneous
  Country: US (occurrence: None)
  Receive Date: 20130614
  Receipt Date: 20130614
  Transmission Date: 20140414
  Serious: No
  Sender: FDA-Public Use
  Company Number: None

PATIENT
  Age: 70 Year
  Sex: Male

DRUGS (1)
  1. CIMZIA [Suspect]
     Dosage: 200 MG/ML SC FREQUENCY : INJECT 400 MG SUBCTANEOULY EVERY 28 DAYS

REACTIONS (2)
  - Arthralgia [None]
  - Fatigue [None]
